FAERS Safety Report 5483015-4 (Version None)
Quarter: 2007Q4

REPORT INFORMATION
  Report Type: 
  Country: None (occurrence: None)
  Receive Date: 20071011
  Receipt Date: 20070928
  Transmission Date: 20080405
  Serious: Yes (Hospitalization)
  Sender: FDA-Public Use
  Company Number: IL-SHR-IL-2006-013086

PATIENT
  Age: 48 Year
  Sex: Female
  Weight: 61 kg

DRUGS (8)
  1. BETAFERON [Suspect]
     Indication: RELAPSING-REMITTING MULTIPLE SCLEROSIS
     Dosage: 8 MIU, EVERY 2D
     Route: 058
     Dates: start: 20050308, end: 20060630
  2. OMEGA 3 [Concomitant]
     Dosage: 1000 MG, 1X/DAY
     Route: 048
     Dates: start: 20051101, end: 20060301
  3. THYROXIN [Concomitant]
     Indication: HYPOTHYROIDISM
     Dosage: 50 A?G, 5DAY/WEEK
     Route: 048
     Dates: start: 20051101
  4. TRAMADOL HCL [Concomitant]
     Dosage: 15 GTT, 1X/DAY
     Route: 048
     Dates: start: 20050504, end: 20051101
  5. TRAMADOL HCL [Concomitant]
     Dosage: 100 MG, 1X/DAY
     Route: 048
     Dates: start: 20051101
  6. BACLOFEN [Concomitant]
     Dosage: 12.5 MG, 2X/DAY
     Route: 048
     Dates: start: 20050131, end: 20050906
  7. BACLOFEN [Concomitant]
     Dosage: 12.5 MG, 3X/DAY
     Route: 048
     Dates: start: 20050907
  8. FOLIC ACID [Concomitant]
     Dosage: 5 MG, 1X/DAY
     Route: 048
     Dates: start: 20050131

REACTIONS (1)
  - CHOLECYSTITIS ACUTE [None]
